FAERS Safety Report 11872740 (Version 1)
Quarter: 2015Q4

REPORT INFORMATION
  Report Type: Spontaneous
  Country: US (occurrence: US)
  Receive Date: 20151228
  Receipt Date: 20151228
  Transmission Date: 20160305
  Serious: Yes (Hospitalization)
  Sender: FDA-Public Use
  Company Number: US-B.I. PHARMACEUTICALS,INC./RIDGEFIELD-2015-BI-71138BP

PATIENT
  Age: 84 Year
  Sex: Male
  Weight: 67 kg

DRUGS (21)
  1. PRADAXA [Suspect]
     Active Substance: DABIGATRAN ETEXILATE MESYLATE
     Indication: CORONARY ARTERY DISEASE
  2. CLOPIDOGREL [Suspect]
     Active Substance: CLOPIDOGREL BISULFATE
     Indication: CORONARY ARTERY DISEASE
     Dosage: 75 MG
     Route: 048
     Dates: start: 20121203, end: 20150412
  3. CARVEDILOL. [Concomitant]
     Active Substance: CARVEDILOL
     Indication: HYPERTENSION
     Dosage: 12.5 MG
     Route: 065
     Dates: start: 20140614
  4. CLOPIDOGREL [Suspect]
     Active Substance: CLOPIDOGREL BISULFATE
     Dosage: 75 MG
     Route: 048
     Dates: start: 20150413
  5. CENTRUM SILVER [Concomitant]
     Active Substance: MINERALS\VITAMINS
     Indication: GENERAL PHYSICAL HEALTH DETERIORATION
     Route: 048
     Dates: start: 20120222
  6. FISH OIL [Concomitant]
     Active Substance: FISH OIL
     Indication: ARTERIOSCLEROSIS
     Dosage: 1200 MG
     Route: 048
     Dates: start: 20120222
  7. TERAZOSIN [Concomitant]
     Active Substance: TERAZOSIN\TERAZOSIN HYDROCHLORIDE
     Indication: BENIGN PROSTATIC HYPERPLASIA
     Dosage: 2 MG
     Route: 048
     Dates: start: 20110606
  8. CITALOPRAM [Concomitant]
     Active Substance: CITALOPRAM HYDROBROMIDE
     Indication: PARKINSON^S DISEASE
     Dosage: 20 MG
     Route: 048
     Dates: start: 20150107
  9. ATORVASTATIN [Concomitant]
     Active Substance: ATORVASTATIN
     Indication: ARTERIOSCLEROSIS
     Dosage: 40 MG
     Route: 048
     Dates: start: 20120222
  10. SPIRONOLACTONE. [Concomitant]
     Active Substance: SPIRONOLACTONE
     Indication: PARAPARESIS
     Dosage: 25 MG
     Route: 048
     Dates: start: 20150126
  11. CARBIDOPA. [Concomitant]
     Active Substance: CARBIDOPA
     Indication: PARKINSON^S DISEASE
     Dosage: 75 MG
     Route: 048
     Dates: start: 20141016
  12. PRADAXA [Suspect]
     Active Substance: DABIGATRAN ETEXILATE MESYLATE
     Indication: PROPHYLAXIS
     Dosage: 150 MG
     Route: 048
     Dates: start: 20150226, end: 20150412
  13. FUROSEMIDE. [Concomitant]
     Active Substance: FUROSEMIDE
     Indication: PARAPARESIS
     Dosage: 40 MG
     Route: 048
     Dates: start: 20150624
  14. LISINOPRIL. [Concomitant]
     Active Substance: LISINOPRIL
     Indication: HYPERTENSION
     Dosage: 40 MG
     Route: 048
     Dates: start: 20140614
  15. CARVEDILOL. [Concomitant]
     Active Substance: CARVEDILOL
     Dosage: 12.5 MG
     Route: 065
     Dates: start: 20150413
  16. PANTOPRAZOLE [Concomitant]
     Active Substance: PANTOPRAZOLE SODIUM
     Indication: PRODUCT USED FOR UNKNOWN INDICATION
     Route: 065
  17. LISINOPRIL. [Concomitant]
     Active Substance: LISINOPRIL
     Dosage: 40 MG
     Route: 048
     Dates: start: 20150413
  18. IRON [Concomitant]
     Active Substance: IRON
     Indication: GENERAL PHYSICAL HEALTH DETERIORATION
     Dosage: 325 MG
     Route: 048
     Dates: start: 20120222
  19. CILOSTAZOL. [Concomitant]
     Active Substance: CILOSTAZOL
     Indication: INTERMITTENT CLAUDICATION
     Dosage: 100 MG
     Route: 048
     Dates: start: 201401
  20. CYANOCOBALAMIN. [Concomitant]
     Active Substance: CYANOCOBALAMIN
     Indication: GENERAL PHYSICAL HEALTH DETERIORATION
     Dosage: 71.4286 MCG
     Route: 030
     Dates: start: 20120222
  21. LEVODOPA [Concomitant]
     Active Substance: LEVODOPA
     Indication: PARKINSON^S DISEASE
     Dosage: 300 NR
     Route: 065
     Dates: start: 20141016

REACTIONS (1)
  - Gastrointestinal haemorrhage [Recovered/Resolved]

NARRATIVE: CASE EVENT DATE: 20150411
